FAERS Safety Report 7413087-9 (Version None)
Quarter: 2011Q2

REPORT INFORMATION
  Report Type: 
  Country: None (occurrence: None)
  Receive Date: 20110413
  Receipt Date: 20110411
  Transmission Date: 20111010
  Serious: Yes (Other)
  Sender: FDA-Public Use
  Company Number: US-PFIZER INC-2011079557

PATIENT
  Sex: Female
  Weight: 72.562 kg

DRUGS (1)
  1. CHANTIX [Suspect]
     Indication: SMOKING CESSATION THERAPY
     Dosage: 0.5 MG TABLET DAILY
     Route: 048
     Dates: start: 20110301, end: 20110301

REACTIONS (3)
  - DEPRESSED MOOD [None]
  - CRYING [None]
  - HOSTILITY [None]
